FAERS Safety Report 20812656 (Version 1)
Quarter: 2022Q2

REPORT INFORMATION
  Report Type: Spontaneous
  Country: DE (occurrence: DE)
  Receive Date: 20220511
  Receipt Date: 20220511
  Transmission Date: 20220721
  Serious: No
  Sender: FDA-Public Use
  Company Number: DE-ALKEM LABORATORIES LIMITED-DE-ALKEM-2022-02636

PATIENT
  Sex: Female
  Weight: 91 kg

DRUGS (4)
  1. PREGABALIN [Suspect]
     Active Substance: PREGABALIN
     Indication: Product used for unknown indication
     Dosage: 600 MILLIGRAM, QD (EVERY 1 DAY)
     Route: 048
     Dates: start: 202202
  2. VAXZEVRIA [Concomitant]
     Active Substance: AZD-1222
     Indication: COVID-19 prophylaxis
     Dosage: UNK
     Route: 065
     Dates: start: 20210715, end: 20210715
  3. VAXZEVRIA [Concomitant]
     Active Substance: AZD-1222
     Dosage: UNK
     Route: 065
     Dates: start: 20210519, end: 20210519
  4. VAXZEVRIA [Concomitant]
     Active Substance: AZD-1222
     Dosage: UNK
     Route: 065
     Dates: start: 20211217, end: 20211217

REACTIONS (1)
  - Menstrual disorder [Not Recovered/Not Resolved]

NARRATIVE: CASE EVENT DATE: 20220301
